FAERS Safety Report 7003226-6 (Version None)
Quarter: 2010Q3

REPORT INFORMATION
  Report Type: 
  Country: None (occurrence: None)
  Receive Date: 20100916
  Receipt Date: 20100903
  Transmission Date: 20110219
  Serious: Yes (Hospitalization, Other)
  Sender: FDA-Public Use
  Company Number: 018318

PATIENT
  Sex: Male
  Weight: 98.1584 kg

DRUGS (16)
  1. LACOSAMIDE [Suspect]
     Indication: EPILEPSY
     Dosage: (250 MG BID ORAL)
     Route: 048
     Dates: start: 20100602
  2. WARFARIN [Suspect]
     Indication: TRANSIENT ISCHAEMIC ATTACK
     Dosage: (2.5 - 5.0 MG BID)
     Dates: start: 20070101
  3. GLYBURIDE [Concomitant]
  4. LEVEMIR [Concomitant]
  5. LISINOPRIL AND HYDROCHLOROTHIAZIDE [Concomitant]
  6. OMEPRAZOLE [Concomitant]
  7. RANITIDINE [Concomitant]
  8. EFFEXOR [Concomitant]
  9. PROPRANOLOL [Concomitant]
  10. OLOPATADINE HYDROCHLORIDE [Concomitant]
  11. NASACORT [Concomitant]
  12. NIACIN [Concomitant]
  13. VITAMIN B NOS [Concomitant]
  14. VITAMIN B12 NOS [Concomitant]
  15. MULTI-VITAMINS [Concomitant]
  16. POTASSIUM [Concomitant]

REACTIONS (9)
  - ATAXIA [None]
  - CEREBRAL ISCHAEMIA [None]
  - FOOT DEFORMITY [None]
  - INTERNATIONAL NORMALISED RATIO DECREASED [None]
  - NAIL OPERATION [None]
  - PERIPHERAL SENSORY NEUROPATHY [None]
  - TYPE 2 DIABETES MELLITUS [None]
  - VASCULAR INSUFFICIENCY [None]
  - VERTIGO [None]
